FAERS Safety Report 18111812 (Version 3)
Quarter: 2020Q4

REPORT INFORMATION
  Report Type: Report from Study
  Country: None (occurrence: US)
  Receive Date: 20200804
  Receipt Date: 20201216
  Transmission Date: 20210113
  Serious: Yes (Other)
  Sender: FDA-Public Use
  Company Number: US-ABBVIE-20K-163-3507958-00

PATIENT
  Sex: Female

DRUGS (1)
  1. HUMIRA [Suspect]
     Active Substance: ADALIMUMAB
     Indication: RHEUMATOID ARTHRITIS
     Route: 058

REACTIONS (11)
  - Oedematous kidney [Unknown]
  - Gait disturbance [Unknown]
  - Weight increased [Unknown]
  - Joint swelling [Unknown]
  - Skin cancer [Unknown]
  - Escherichia urinary tract infection [Unknown]
  - Arthritis [Unknown]
  - Kidney fibrosis [Unknown]
  - Dehydration [Unknown]
  - Blood pressure abnormal [Unknown]
  - Asthma [Unknown]
